FAERS Safety Report 10446076 (Version 1)
Quarter: 2014Q3

REPORT INFORMATION
  Report Type: Spontaneous
  Country: ES (occurrence: ES)
  Receive Date: 20140910
  Receipt Date: 20140910
  Transmission Date: 20150326
  Serious: Yes (Life-Threatening, Hospitalization)
  Sender: FDA-Public Use
  Company Number: PHHY2014ES110953

PATIENT
  Age: 71 Year
  Sex: Male

DRUGS (6)
  1. FUROSEMIDE. [Suspect]
     Active Substance: FUROSEMIDE
     Indication: CONGESTIVE CARDIOMYOPATHY
     Dosage: 60 MG, QD
     Route: 048
     Dates: start: 2010, end: 20140203
  2. ENALAPRIL [Suspect]
     Active Substance: ENALAPRIL
     Indication: HYPERTENSION
     Dosage: 20 MG, QD
     Route: 048
     Dates: start: 2010, end: 20140203
  3. EPLERENONE. [Suspect]
     Active Substance: EPLERENONE
     Indication: HYPERTENSION
     Dosage: 25 MG, QD
     Route: 048
     Dates: start: 201205, end: 20140203
  4. SINTROM [Suspect]
     Active Substance: ACENOCOUMAROL
     Indication: ATRIAL FIBRILLATION
     Dosage: 4 MG, UNK
     Route: 048
     Dates: end: 20140203
  5. DIGOXINE [Suspect]
     Active Substance: DIGOXIN
     Indication: ATRIAL FIBRILLATION
     Dosage: 1.25 MG, QD
     Route: 048
     Dates: end: 20140203
  6. NEBIVOLOL APOTEX [Suspect]
     Active Substance: NEBIVOLOL
     Indication: CONGESTIVE CARDIOMYOPATHY
     Dosage: 5 MG, QD
     Route: 048
     Dates: start: 2010, end: 20140203

REACTIONS (6)
  - Ventricular tachycardia [Recovered/Resolved with Sequelae]
  - Bundle branch block right [None]
  - Cardiomegaly [None]
  - Mitral valve incompetence [None]
  - Hyperkalaemia [Recovered/Resolved with Sequelae]
  - Drug interaction [None]

NARRATIVE: CASE EVENT DATE: 20140203
